FAERS Safety Report 5638295-9 (Version None)
Quarter: 2008Q1

REPORT INFORMATION
  Report Type: 
  Country: None (occurrence: None)
  Receive Date: 20080226
  Receipt Date: 20080218
  Transmission Date: 20080703
  Serious: Yes (Other)
  Sender: FDA-Public Use
  Company Number: JP-BAYER-200810287BYL

PATIENT
  Age: 91 Year
  Sex: Female

DRUGS (3)
  1. ASPIRIN [Suspect]
     Indication: CEREBRAL INFARCTION
     Route: 048
     Dates: start: 20071201
  2. FAMOTIDINE [Concomitant]
     Route: 048
  3. LACTOMIN [Concomitant]
     Route: 048

REACTIONS (1)
  - ANALGESIC ASTHMA SYNDROME [None]
